FAERS Safety Report 21038837 (Version 2)
Quarter: 2022Q3

REPORT INFORMATION
  Report Type: Spontaneous
  Country: IL (occurrence: IL)
  Receive Date: 20220704
  Receipt Date: 20220810
  Transmission Date: 20221027
  Serious: Yes (Other)
  Sender: FDA-Public Use
  Company Number: IL-002147023-NVSC2022IL146154

PATIENT
  Age: 4 Year
  Sex: Male

DRUGS (1)
  1. CYCLOSPORINE [Suspect]
     Active Substance: CYCLOSPORINE
     Indication: Vernal keratoconjunctivitis
     Route: 048

REACTIONS (10)
  - Blindness [Unknown]
  - Eye abscess [Unknown]
  - Disease recurrence [Unknown]
  - Dermatitis atopic [Unknown]
  - Rhinitis allergic [Unknown]
  - Food allergy [Unknown]
  - Limb fracture [Unknown]
  - Asthma [Unknown]
  - Drug ineffective [Unknown]
  - Product use in unapproved indication [Unknown]
